FAERS Safety Report 10047036 (Version 1)
Quarter: 2014Q1

REPORT INFORMATION
  Report Type: Spontaneous
  Country: GB (occurrence: None)
  Receive Date: 20140327
  Receipt Date: 20140327
  Transmission Date: 20141002
  Serious: Yes (Other)
  Sender: FDA-Public Use
  Company Number: B0979773A

PATIENT
  Sex: 0

DRUGS (1)
  1. ZANAMIVIR [Suspect]
     Indication: H1N1 INFLUENZA
     Dosage: TRANSPLACENTARY

REACTIONS (2)
  - Foetal exposure during pregnancy [None]
  - Congenital hydronephrosis [None]
